FAERS Safety Report 12381288 (Version 1)
Quarter: 2016Q2

REPORT INFORMATION
  Report Type: Spontaneous
  Country: US (occurrence: None)
  Receive Date: 20160517
  Receipt Date: 20160517
  Transmission Date: 20160815
  Serious: Yes (Hospitalization)
  Sender: FDA-Public Use
  Company Number: None

PATIENT
  Age: 77 Year
  Sex: Male
  Weight: 85.9 kg

DRUGS (2)
  1. ATENOLOL/CHLORTHALIDONE [Suspect]
     Active Substance: ATENOLOL\CHLORTHALIDONE
     Dosage: 100/25 MG EVERY DAY PO
     Route: 048
     Dates: start: 20110506, end: 20160326
  2. LOSARTAN. [Suspect]
     Active Substance: LOSARTAN
     Indication: HYPERTENSION
     Route: 048
     Dates: start: 20010320, end: 20160326

REACTIONS (2)
  - Hypovolaemia [None]
  - Syncope [None]

NARRATIVE: CASE EVENT DATE: 20160516
